FAERS Safety Report 10385880 (Version 1)
Quarter: 2014Q3

REPORT INFORMATION
  Report Type: Spontaneous
  Country: AR (occurrence: AR)
  Receive Date: 20140814
  Receipt Date: 20140814
  Transmission Date: 20150326
  Serious: Yes (Death)
  Sender: FDA-Public Use
  Company Number: AR-UPSHER-SMITH LABORATORIES, INC.-14002117

PATIENT
  Age: 54 Year
  Sex: Male

DRUGS (5)
  1. LEVODOPA [Suspect]
     Active Substance: LEVODOPA
     Indication: PARKINSON^S DISEASE
     Dosage: 600 MG, UNK
     Route: 065
  2. CARBIDOPA. [Suspect]
     Active Substance: CARBIDOPA
     Indication: PARKINSON^S DISEASE
     Dosage: 60 MG, UNK
     Route: 065
  3. AMANTADINE HYDROCHLORIDE. [Suspect]
     Active Substance: AMANTADINE HYDROCHLORIDE
     Indication: PARKINSON^S DISEASE
     Dosage: 300 MG, UNK
     Route: 065
  4. ENTACAPONE. [Suspect]
     Active Substance: ENTACAPONE
     Indication: PARKINSON^S DISEASE
     Dosage: 800 MG, UNK
     Route: 065
  5. RASAGILINE [Suspect]
     Active Substance: RASAGILINE
     Indication: PARKINSON^S DISEASE
     Dosage: 1 MG, UNK
     Route: 065

REACTIONS (2)
  - Myocardial ischaemia [Fatal]
  - Sudden death [None]
